FAERS Safety Report 6256597-2 (Version None)
Quarter: 2009Q3

REPORT INFORMATION
  Report Type: 
  Country: None (occurrence: None)
  Receive Date: 20090706
  Receipt Date: 20090626
  Transmission Date: 20100115
  Serious: Yes (Other)
  Sender: FDA-Public Use
  Company Number: SE-JNJFOC-20090700757

PATIENT
  Age: 26 Year
  Sex: Male

DRUGS (2)
  1. HALOPERIDOL [Suspect]
     Indication: DELUSION
     Route: 065
  2. LEVOMEPROMAZIN [Suspect]
     Indication: CONFUSIONAL STATE
     Route: 065

REACTIONS (4)
  - CONVULSION [None]
  - FLUID RETENTION [None]
  - HYPONATRAEMIA [None]
  - WATER INTOXICATION [None]
